FAERS Safety Report 17575438 (Version 2)
Quarter: 2022Q2

REPORT INFORMATION
  Report Type: Spontaneous
  Country: ES (occurrence: ES)
  Receive Date: 20200324
  Receipt Date: 20220512
  Transmission Date: 20220720
  Serious: Yes (Hospitalization, Other)
  Sender: FDA-Public Use
  Company Number: ES-AEMPS-303064

PATIENT
  Age: 73 Year
  Sex: Male

DRUGS (4)
  1. EPLERENONE [Interacting]
     Active Substance: EPLERENONE
     Indication: Ischaemic cardiomyopathy
     Dosage: 25 MILLIGRAM, ONCE A DAY
     Route: 048
     Dates: start: 20150710, end: 20160730
  2. FUROSEMIDE [Interacting]
     Active Substance: FUROSEMIDE
     Indication: Ischaemic cardiomyopathy
     Dosage: 40 MILLIGRAM, ONCE A DAY
     Route: 048
     Dates: end: 20160730
  3. METFORMIN [Interacting]
     Active Substance: METFORMIN HYDROCHLORIDE
     Indication: Type 2 diabetes mellitus
     Dosage: 2.55 GRAM, ONCE A DAY
     Route: 048
     Dates: start: 201006, end: 20160730
  4. RAMIPRIL [Interacting]
     Active Substance: RAMIPRIL
     Indication: Ischaemic cardiomyopathy
     Dosage: 5 MILLIGRAM, ONCE A DAY
     Route: 048
     Dates: start: 2015, end: 20171215

REACTIONS (3)
  - Acute kidney injury [Recovered/Resolved]
  - Drug interaction [Recovered/Resolved]
  - Lactic acidosis [Recovered/Resolved]

NARRATIVE: CASE EVENT DATE: 20160729
